FAERS Safety Report 10748357 (Version 1)
Quarter: 2015Q1

REPORT INFORMATION
  Report Type: Spontaneous
  Country: US (occurrence: None)
  Receive Date: 20150120
  Receipt Date: 20150120
  Transmission Date: 20150721
  Serious: No
  Sender: FDA-Public Use
  Company Number: AEGR000989

PATIENT
  Age: 73 Year
  Sex: Female
  Weight: 85.7 kg

DRUGS (9)
  1. OMEGA 3-6-9 (FISH OIL, TOCOPHEROL) [Concomitant]
  2. LEVOTHYROXINE [Concomitant]
     Active Substance: LEVOTHYROXINE
  3. LANTUS [Concomitant]
     Active Substance: INSULIN GLARGINE
  4. JUXTAPID [Suspect]
     Active Substance: LOMITAPIDE MESYLATE
     Indication: TYPE IIA HYPERLIPIDAEMIA
     Route: 048
     Dates: start: 20141022
  5. HYDROCHLOROTHIAZIDE (HYDROCHLOROTHIAZIDE) [Concomitant]
     Active Substance: HYDROCHLOROTHIAZIDE
  6. LISINOPRIL. [Concomitant]
     Active Substance: LISINOPRIL
  7. ZETIA [Concomitant]
     Active Substance: EZETIMIBE
  8. CRESTOR [Concomitant]
     Active Substance: ROSUVASTATIN CALCIUM
  9. VITAMIN E [Concomitant]
     Active Substance: .ALPHA.-TOCOPHEROL

REACTIONS (2)
  - Blood glucose increased [None]
  - Off label use [None]

NARRATIVE: CASE EVENT DATE: 201410
